FAERS Safety Report 12777504 (Version 1)
Quarter: 2016Q3

REPORT INFORMATION
  Report Type: Spontaneous
  Country: US (occurrence: US)
  Receive Date: 20160924
  Receipt Date: 20160924
  Transmission Date: 20161109
  Serious: No
  Sender: FDA-Public Use
  Company Number: US-TEVA-650625USA

PATIENT
  Sex: Female
  Weight: 64.92 kg

DRUGS (1)
  1. CLONAZEPAM. [Suspect]
     Active Substance: CLONAZEPAM
     Indication: INSOMNIA
     Route: 065

REACTIONS (7)
  - Product use issue [Unknown]
  - Fibromyalgia [Unknown]
  - Intentional product misuse [Unknown]
  - Burning mouth syndrome [Unknown]
  - Neuropathy peripheral [Unknown]
  - Oral pain [Unknown]
  - Depression [Unknown]
